FAERS Safety Report 4988654-2 (Version None)
Quarter: 2006Q2

REPORT INFORMATION
  Report Type: 
  Country: None (occurrence: None)
  Receive Date: 20060502
  Receipt Date: 20050418
  Transmission Date: 20061013
  Serious: Yes (Hospitalization)
  Sender: FDA-Public Use
  Company Number: US-MERCK-0504USA03496

PATIENT
  Age: 67 Year
  Sex: Female
  Weight: 68 kg

DRUGS (2)
  1. VIOXX [Suspect]
     Indication: ARTHRITIS
     Route: 048
     Dates: start: 20001101, end: 20040901
  2. ALEVE [Suspect]
     Indication: BACK PAIN
     Route: 065

REACTIONS (34)
  - ARTHRALGIA [None]
  - ASTHENIA [None]
  - BACK PAIN [None]
  - BALANCE DISORDER [None]
  - BIFASCICULAR BLOCK [None]
  - BLOOD CHOLESTEROL INCREASED [None]
  - CEREBRAL INFARCTION [None]
  - COLONIC POLYP [None]
  - CYSTITIS [None]
  - DEPRESSION [None]
  - DIARRHOEA [None]
  - DIVERTICULUM [None]
  - DIZZINESS [None]
  - DRUG EFFECT DECREASED [None]
  - FALL [None]
  - FATIGUE [None]
  - FIBROMYALGIA [None]
  - GASTROOESOPHAGEAL REFLUX DISEASE [None]
  - HIATUS HERNIA [None]
  - HOT FLUSH [None]
  - HYPERTENSION [None]
  - HYPERTONIC BLADDER [None]
  - INCREASED TENDENCY TO BRUISE [None]
  - IRRITABLE BOWEL SYNDROME [None]
  - LIMB DISCOMFORT [None]
  - MITRAL VALVE INCOMPETENCE [None]
  - NASAL CONGESTION [None]
  - PYELONEPHRITIS ACUTE [None]
  - SHOULDER PAIN [None]
  - SYNCOPE [None]
  - TRICUSPID VALVE INCOMPETENCE [None]
  - UPPER RESPIRATORY TRACT CONGESTION [None]
  - URGE INCONTINENCE [None]
  - URINARY TRACT INFECTION [None]
